FAERS Safety Report 9416799 (Version 1)
Quarter: 2013Q3

REPORT INFORMATION
  Report Type: Spontaneous
  Country: US (occurrence: None)
  Receive Date: 20130719
  Receipt Date: 20130719
  Transmission Date: 20140515
  Serious: Yes (Hospitalization)
  Sender: FDA-Public Use
  Company Number: AXC-2013-000320

PATIENT
  Age: 8 Year
  Sex: Male
  Weight: 30 kg

DRUGS (10)
  1. ZENPEP [Suspect]
     Indication: CYSTIC FIBROSIS
     Dosage: 40000 U TID WITH MEALS ANS 2000 U BID WIRH SNACKS
     Route: 048
     Dates: end: 20130705
  2. SOURCECF [Suspect]
     Route: 048
  3. TOBRAMYCIN (TOBRAMYCIN) [Concomitant]
  4. SINGULAIR [Concomitant]
  5. ZANTAC (RANITIDINE HYDROCHLORIDE) [Concomitant]
  6. FLOVENT (FLUTICASONE PROPIONATE) [Concomitant]
  7. MIRALAX /00754501 (MACROGOL) [Concomitant]
  8. ALBUTEROL /00139501 (SALBUTAMOL) [Concomitant]
  9. BACTRIM (SULFAMETHOXAZOLE, TRIMETJOPRIM) [Concomitant]
  10. REGLAN /00041901 (METOCLOPRAMIDE) [Concomitant]

REACTIONS (1)
  - Mechanical ventilation [None]
